FAERS Safety Report 8903148 (Version 1)
Quarter: 2012Q4

REPORT INFORMATION
  Report Type: Report from Study
  Country: US (occurrence: US)
  Receive Date: 20121113
  Receipt Date: 20121113
  Transmission Date: 20130627
  Serious: Yes (Hospitalization)
  Sender: FDA-Public Use
  Company Number: US-PFIZER INC-2012278440

PATIENT
  Age: 12 Year
  Sex: Female
  Weight: 57.27 kg

DRUGS (4)
  1. REVATIO [Suspect]
     Dosage: UNK
  2. REMODULIN [Suspect]
     Indication: PRIMARY PULMONARY HYPERTENSION
     Dosage: 37.44 ug/kg (0.026 ug/kg, 1 in 1 min)
     Route: 058
     Dates: start: 20120522
  3. COUMADIN [Concomitant]
     Dosage: UNK
  4. LETAIRIS [Concomitant]
     Dosage: UNK

REACTIONS (1)
  - Chest pain [Unknown]
